FAERS Safety Report 9450997 (Version 1)
Quarter: 2013Q3

REPORT INFORMATION
  Report Type: Spontaneous
  Country: GB (occurrence: None)
  Receive Date: 20130807
  Receipt Date: 20130807
  Transmission Date: 20140515
  Serious: Yes (Life-Threatening)
  Sender: FDA-Public Use
  Company Number: AUR-APL-2013-06355

PATIENT
  Age: 79 Year
  Sex: Male
  Weight: 73 kg

DRUGS (8)
  1. BISOPROLOL [Suspect]
     Indication: PRODUCT USED FOR UNKNOWN INDICATION
  2. CLARITYN (CROMOGLICATE SODIUM) [Suspect]
     Indication: SEASONAL ALLERGY
     Route: 048
     Dates: start: 20130610, end: 20130716
  3. AMITRIPTYLINE (AMITRIPTYLINE) [Concomitant]
  4. ASPIRIN (ACETYLSALICYLIC ACID) [Concomitant]
  5. NASONEX (MOMETASONE FUROATE) [Concomitant]
  6. PERINDOPRIL (PERINDOPRIL) [Concomitant]
  7. SIMVASTATIN (SIMVASTATIN) [Concomitant]
  8. VENTOLIN (SALBUTAMOL) [Concomitant]

REACTIONS (1)
  - Drug interaction [None]
